FAERS Safety Report 16861317 (Version 1)
Quarter: 2019Q3

REPORT INFORMATION
  Report Type: Spontaneous
  Country: US (occurrence: US)
  Receive Date: 20190927
  Receipt Date: 20190927
  Transmission Date: 20191005
  Serious: Yes (Hospitalization, Other)
  Sender: FDA-Public Use
  Company Number: US-APOTEX-2019AP022458

PATIENT
  Age: 53 Year
  Sex: Female

DRUGS (2)
  1. LITHIUM CARBONATE. [Suspect]
     Active Substance: LITHIUM CARBONATE
     Dosage: 1200 MG, UNK
     Route: 065
     Dates: start: 2016, end: 201609
  2. LITHIUM CARBONATE. [Suspect]
     Active Substance: LITHIUM CARBONATE
     Indication: SCHIZOAFFECTIVE DISORDER
     Dosage: 600 MG, UNK
     Route: 065

REACTIONS (5)
  - Diabetes insipidus [Unknown]
  - Proteinuria [Unknown]
  - Blood creatinine increased [Not Recovered/Not Resolved]
  - Hyperparathyroidism [Recovered/Resolved]
  - Toxicity to various agents [Unknown]
